FAERS Safety Report 8170186-4 (Version None)
Quarter: 2012Q1

REPORT INFORMATION
  Report Type: 
  Country: None (occurrence: None)
  Receive Date: 20120228
  Receipt Date: 20120222
  Transmission Date: 20120608
  Serious: Yes (Other)
  Sender: FDA-Public Use
  Company Number: PHEH2012US004478

PATIENT
  Sex: Female

DRUGS (2)
  1. JANUMET [Concomitant]
     Dosage: UNK UKN, UNK
  2. DIOVAN HCT [Suspect]
     Dosage: 1 DF (160/25 MG) QD

REACTIONS (2)
  - PNEUMONIA [None]
  - NASOPHARYNGITIS [None]
